FAERS Safety Report 5568439-9 (Version None)
Quarter: 2007Q4

REPORT INFORMATION
  Report Type: 
  Country: None (occurrence: None)
  Receive Date: 20071220
  Receipt Date: 20071214
  Transmission Date: 20080405
  Serious: Yes (Life-Threatening, Other)
  Sender: FDA-Public Use
  Company Number: US-ELI_LILLY_AND_COMPANY-US200712003106

PATIENT
  Sex: Female
  Weight: 92.971 kg

DRUGS (6)
  1. BYETTA [Suspect]
     Dosage: 5 UG, 2/D
     Route: 058
     Dates: start: 20051001, end: 20051101
  2. BYETTA [Suspect]
     Dosage: 10 UG, 2/D
     Route: 058
     Dates: start: 20051101
  3. METFORMIN HCL [Concomitant]
     Dosage: 1000 MG, 2/D
  4. ANTI-DIABETICS [Concomitant]
  5. NEURONTIN [Concomitant]
  6. TRILEPTIN [Concomitant]

REACTIONS (9)
  - ASTHENIA [None]
  - BRONCHITIS [None]
  - DIARRHOEA [None]
  - DRUG HYPERSENSITIVITY [None]
  - PHARYNGEAL OEDEMA [None]
  - PRURITUS [None]
  - RESPIRATORY ARREST [None]
  - SINUS DISORDER [None]
  - WEIGHT DECREASED [None]
